FAERS Safety Report 10234936 (Version 1)
Quarter: 2014Q2

REPORT INFORMATION
  Report Type: Spontaneous
  Country: US (occurrence: US)
  Receive Date: 20140613
  Receipt Date: 20140613
  Transmission Date: 20141212
  Serious: Yes (Death, Hospitalization)
  Sender: FDA-Public Use
  Company Number: US-JNJFOC-20140601092

PATIENT
  Sex: Male
  Weight: 75.6 kg

DRUGS (1)
  1. ZYTIGA [Suspect]
     Indication: PRODUCT USED FOR UNKNOWN INDICATION
     Route: 065
     Dates: start: 201307, end: 20131104

REACTIONS (5)
  - Death [Fatal]
  - Mental status changes [Unknown]
  - Pain [Unknown]
  - Prostatic specific antigen increased [Unknown]
  - Confusional state [Unknown]
